FAERS Safety Report 13180408 (Version 1)
Quarter: 2017Q1

REPORT INFORMATION
  Report Type: Report from Study
  Country: NL (occurrence: NL)
  Receive Date: 20170202
  Receipt Date: 20170202
  Transmission Date: 20170428
  Serious: Yes (Hospitalization)
  Sender: FDA-Public Use
  Company Number: NL-ROCHE-1883563

PATIENT
  Age: 77 Year
  Sex: Female

DRUGS (6)
  1. COBIMETINIB [Suspect]
     Active Substance: COBIMETINIB
     Indication: METASTATIC MALIGNANT MELANOMA
     Dosage: MOST RESCENT DOSE  13/JUL/2016
     Route: 048
     Dates: start: 20160422
  2. BENZYLPENICILLIN [Concomitant]
     Active Substance: PENICILLIN G
     Dosage: 24/MLINJECTION PER 24 HOURS
     Route: 065
     Dates: start: 20170118
  3. METOPROLOL. [Concomitant]
     Active Substance: METOPROLOL
     Route: 065
  4. VEMURAFENIB [Suspect]
     Active Substance: VEMURAFENIB
     Indication: METASTATIC MALIGNANT MELANOMA
     Dosage: MOST RESCENT DOSE 03/JAN/2017
     Route: 048
     Dates: start: 20160421
  5. BUMETANIDE. [Concomitant]
     Active Substance: BUMETANIDE
     Route: 065
     Dates: start: 20170117
  6. DIGOXINE [Concomitant]
     Active Substance: DIGOXIN
     Route: 065
     Dates: start: 20170117

REACTIONS (2)
  - Pyrexia [Unknown]
  - Asthenia [Unknown]

NARRATIVE: CASE EVENT DATE: 20170116
